FAERS Safety Report 7532852-0 (Version None)
Quarter: 2011Q2

REPORT INFORMATION
  Report Type: 
  Country: None (occurrence: None)
  Receive Date: 20110608
  Receipt Date: 20110603
  Transmission Date: 20111010
  Serious: Yes (Death)
  Sender: FDA-Public Use
  Company Number: FR-PFIZER INC-2010095697

PATIENT
  Age: 57 Year
  Sex: Male

DRUGS (4)
  1. SUTENT [Suspect]
     Indication: NEUROENDOCRINE TUMOUR
     Dosage: 37.5 MG, 1X/DAY
     Route: 048
     Dates: start: 20100504, end: 20100629
  2. NAPROXEN [Concomitant]
     Indication: SCIATICA
     Dosage: 1100 MG, 1X/DAY
     Route: 048
     Dates: start: 20100425, end: 20100721
  3. OMEPRAZOLE [Concomitant]
     Indication: REFLUX GASTRITIS
     Dosage: 10 MG, 1X/DAY
     Route: 048
     Dates: start: 20100629, end: 20100721
  4. MORPHINE SULFATE [Concomitant]
     Indication: SCIATICA
     Dosage: 150 MG, 1X/DAY
     Route: 048
     Dates: start: 20100505, end: 20100721

REACTIONS (2)
  - DISEASE PROGRESSION [None]
  - NEUROENDOCRINE TUMOUR [None]
